FAERS Safety Report 9312034 (Version 1)
Quarter: 2013Q2

REPORT INFORMATION
  Report Type: Spontaneous
  Country: US (occurrence: US)
  Receive Date: 20130528
  Receipt Date: 20130528
  Transmission Date: 20140414
  Serious: Yes (Other)
  Sender: FDA-Public Use
  Company Number: US-PFIZER INC-2013158421

PATIENT
  Age: 49 Year
  Sex: Female

DRUGS (1)
  1. ADRIAMYCIN [Suspect]
     Dosage: UNK

REACTIONS (3)
  - Cardiac failure [Unknown]
  - Cardiomyopathy [Unknown]
  - Hepatic function abnormal [Unknown]
